FAERS Safety Report 7996293-4 (Version None)
Quarter: 2011Q4

REPORT INFORMATION
  Report Type: 
  Country: None (occurrence: None)
  Receive Date: 20111220
  Receipt Date: 20111220
  Transmission Date: 20120403
  Serious: Yes (Other)
  Sender: FDA-Public Use
  Company Number: US-ROXANE LABORATORIES, INC.-2011-RO-01842RO

PATIENT
  Age: 56 Year

DRUGS (1)
  1. CODEINE SULFATE TABLETS, 15 MG, 30MG, AND 60MG [Suspect]

REACTIONS (1)
  - ANAPHYLACTIC SHOCK [None]
